FAERS Safety Report 24876706 (Version 1)
Quarter: 2025Q1

REPORT INFORMATION
  Report Type: Spontaneous
  Country: US (occurrence: US)
  Receive Date: 20250123
  Receipt Date: 20250123
  Transmission Date: 20250409
  Serious: No
  Sender: ROCHE
  Company Number: US-ROCHE-10000185015

PATIENT
  Age: 7 Year
  Sex: Male

DRUGS (2)
  1. HEMLIBRA [Suspect]
     Active Substance: EMICIZUMAB-KXWH
     Indication: Factor VIII deficiency
     Dosage: STRENGTH: 60MG/0.4ML
     Route: 058
     Dates: start: 202403
  2. NOVOSEVEN RT [Concomitant]
     Active Substance: COAGULATION FACTOR VIIA RECOMBINANT HUMAN

REACTIONS (1)
  - Ear infection [Recovered/Resolved]

NARRATIVE: CASE EVENT DATE: 20250101
